FAERS Safety Report 12254938 (Version 2)
Quarter: 2017Q1

REPORT INFORMATION
  Report Type: Spontaneous
  Country: CN (occurrence: CN)
  Receive Date: 20160411
  Receipt Date: 20170309
  Transmission Date: 20170428
  Serious: Yes (Life-Threatening)
  Sender: FDA-Public Use
  Company Number: CN-PFIZER INC-2016200519

PATIENT
  Age: 16 Year
  Sex: Male
  Weight: 52 kg

DRUGS (3)
  1. AMBROXOL HYDROCHLORIDE [Concomitant]
     Active Substance: AMBROXOL HYDROCHLORIDE
     Indication: ASTHMA
     Dosage: 4 MG, 1X/DAY
     Route: 041
     Dates: start: 20151016, end: 20151016
  2. DOXOFYLLINE [Concomitant]
     Active Substance: DOXOFYLLINE
     Indication: ASTHMA
     Dosage: 0.3 G, 1X/DAY
     Route: 041
     Dates: start: 20151016, end: 20151016
  3. SOLU-MEDROL [Suspect]
     Active Substance: METHYLPREDNISOLONE SODIUM SUCCINATE
     Indication: ASTHMA
     Dosage: 40 MG, 1X/DAY
     Route: 042
     Dates: start: 20151016, end: 20151016

REACTIONS (3)
  - Cyanosis [Recovering/Resolving]
  - Hyperhidrosis [Recovering/Resolving]
  - Confusional state [Recovering/Resolving]

NARRATIVE: CASE EVENT DATE: 20151016
